FAERS Safety Report 6369848-0 (Version None)
Quarter: 2009Q3

REPORT INFORMATION
  Report Type: 
  Country: None (occurrence: None)
  Receive Date: 20090923
  Receipt Date: 20070622
  Transmission Date: 20100115
  Serious: Yes (Hospitalization)
  Sender: FDA-Public Use
  Company Number: US-ASTRAZENECA-2006UW10831

PATIENT
  Age: 528 Month
  Sex: Male
  Weight: 181.4 kg

DRUGS (19)
  1. SEROQUEL [Suspect]
     Indication: ANXIETY
     Route: 048
     Dates: start: 20040901, end: 20061016
  2. SEROQUEL [Suspect]
     Indication: DEPRESSION
     Route: 048
     Dates: start: 20040901, end: 20061016
  3. SEROQUEL [Suspect]
     Indication: SCHIZOPHRENIA
     Route: 048
     Dates: start: 20040901, end: 20061016
  4. SEROQUEL [Suspect]
     Dosage: 100 - 600 MG FLUCTUATING
     Route: 048
     Dates: start: 20040810
  5. SEROQUEL [Suspect]
     Dosage: 100 - 600 MG FLUCTUATING
     Route: 048
     Dates: start: 20040810
  6. SEROQUEL [Suspect]
     Dosage: 100 - 600 MG FLUCTUATING
     Route: 048
     Dates: start: 20040810
  7. RISPERDAL [Concomitant]
  8. GLUCOPHAGE [Concomitant]
  9. MONOPRIL [Concomitant]
  10. BEXTRA [Concomitant]
  11. LORAZEPAM [Concomitant]
  12. ROXICODONE [Concomitant]
  13. COMBIVENT [Concomitant]
  14. NEXIUM [Concomitant]
     Route: 048
  15. GABAPENTIN [Concomitant]
  16. GABAPENTIN [Concomitant]
     Route: 048
  17. OXYCODONE HCL AND ACETAMINOPHEN [Concomitant]
     Dosage: 10 MG / 325 MG FOUR TIMES A DAY
     Route: 048
  18. LEXAPRO [Concomitant]
  19. VALIUM [Concomitant]

REACTIONS (4)
  - ANXIETY [None]
  - DIABETES MELLITUS [None]
  - NECK PAIN [None]
  - POOR QUALITY SLEEP [None]
